FAERS Safety Report 19467039 (Version 2)
Quarter: 2021Q3

REPORT INFORMATION
  Report Type: Spontaneous
  Country: JP (occurrence: JP)
  Receive Date: 20210628
  Receipt Date: 20210702
  Transmission Date: 20211014
  Serious: Yes (Other)
  Sender: FDA-Public Use
  Company Number: JP-ORION CORPORATION ORION PHARMA-ENT 2021-0067

PATIENT
  Age: 62 Year
  Sex: Female

DRUGS (1)
  1. COMTAN [Suspect]
     Active Substance: ENTACAPONE
     Indication: PARKINSON^S DISEASE
     Dosage: STRENGTH:100 MG
     Route: 048

REACTIONS (3)
  - Therapeutic product effect incomplete [Unknown]
  - Parkinson^s disease [Unknown]
  - Wrong technique in product usage process [Unknown]
